FAERS Safety Report 20034482 (Version 1)
Quarter: 2021Q4

REPORT INFORMATION
  Report Type: Spontaneous
  Country: US (occurrence: US)
  Receive Date: 20211104
  Receipt Date: 20211104
  Transmission Date: 20220304
  Serious: No
  Sender: FDA-Public Use
  Company Number: US-PERRIGO-21US024836

PATIENT
  Weight: 117.91 kg

DRUGS (2)
  1. DOXYLAMINE SUCCINATE [Suspect]
     Active Substance: DOXYLAMINE SUCCINATE
     Indication: Insomnia
     Dosage: 25 MG, UNKNOWN
     Route: 048
     Dates: start: 202109, end: 202109
  2. DOXYLAMINE SUCCINATE [Suspect]
     Active Substance: DOXYLAMINE SUCCINATE
     Dosage: 12.5 MG, UNKNOWN
     Route: 048
     Dates: start: 202109

REACTIONS (4)
  - Somnolence [Unknown]
  - Dizziness [Unknown]
  - Malaise [Unknown]
  - Underdose [Unknown]

NARRATIVE: CASE EVENT DATE: 20210901
